FAERS Safety Report 11706150 (Version 4)
Quarter: 2016Q1

REPORT INFORMATION
  Report Type: Spontaneous
  Country: DE (occurrence: DE)
  Receive Date: 20151106
  Receipt Date: 20160104
  Transmission Date: 20160525
  Serious: Yes (Death, Other)
  Sender: FDA-Public Use
  Company Number: DE-ALEXION PHARMACEUTICALS INC-A201504339

PATIENT
  Sex: Male

DRUGS (1)
  1. SOLIRIS [Suspect]
     Active Substance: ECULIZUMAB
     Indication: HAEMOLYTIC URAEMIC SYNDROME
     Dosage: UNK, QW
     Route: 042
     Dates: start: 20130628, end: 20130705

REACTIONS (9)
  - Cytomegalovirus infection [Unknown]
  - Acute graft versus host disease in intestine [Fatal]
  - Acute kidney injury [Unknown]
  - Lower gastrointestinal haemorrhage [Unknown]
  - Hypertension [Unknown]
  - Skin haemorrhage [Unknown]
  - Respiratory failure [Unknown]
  - Superinfection [Unknown]
  - Fluid overload [Unknown]
